FAERS Safety Report 12928501 (Version 2)
Quarter: 2016Q4

REPORT INFORMATION
  Report Type: Spontaneous
  Country: IT (occurrence: IT)
  Receive Date: 20161110
  Receipt Date: 20161128
  Transmission Date: 20170207
  Serious: Yes (Hospitalization)
  Sender: FDA-Public Use
  Company Number: IT-SUN PHARMACEUTICAL INDUSTRIES LTD-2016RR-127239

PATIENT
  Age: 27 Year
  Sex: Male

DRUGS (4)
  1. ALPRAZOLAM. [Suspect]
     Active Substance: ALPRAZOLAM
     Indication: DRUG ABUSE
     Dosage: 10 MG TOTAL
     Route: 048
     Dates: start: 20160425, end: 20160425
  2. ESILGAN 1 MG [Suspect]
     Active Substance: ESTAZOLAM
     Indication: DRUG ABUSE
     Dosage: 60 MG TOTAL
     Route: 048
     Dates: start: 20160425, end: 20160425
  3. EFEXOR 37,5 MG [Suspect]
     Active Substance: VENLAFAXINE HYDROCHLORIDE
     Indication: DRUG ABUSE
     Dosage: 525 MG TOTAL
     Route: 048
     Dates: start: 20160425, end: 20160425
  4. TRIAZOLAM. [Suspect]
     Active Substance: TRIAZOLAM
     Indication: DRUG ABUSE
     Dosage: 5 MG TOTAL
     Route: 048
     Dates: start: 20160425, end: 20160425

REACTIONS (3)
  - Loss of consciousness [Recovering/Resolving]
  - Suicidal ideation [Recovering/Resolving]
  - Drug abuse [Recovering/Resolving]

NARRATIVE: CASE EVENT DATE: 20160425
